FAERS Safety Report 11194365 (Version 3)
Quarter: 2017Q1

REPORT INFORMATION
  Report Type: Spontaneous
  Country: US (occurrence: US)
  Receive Date: 20150616
  Receipt Date: 20170321
  Transmission Date: 20170428
  Serious: Yes (Other)
  Sender: FDA-Public Use
  Company Number: US-ELI_LILLY_AND_COMPANY-US201506004691

PATIENT
  Sex: Female
  Weight: 81.63 kg

DRUGS (7)
  1. CYMBALTA [Suspect]
     Active Substance: DULOXETINE HYDROCHLORIDE
     Indication: FIBROMYALGIA
     Dosage: UNK, UNKNOWN
     Route: 048
     Dates: start: 20131030
  2. CYMBALTA [Suspect]
     Active Substance: DULOXETINE HYDROCHLORIDE
     Dosage: 60 MG, QD
     Route: 048
     Dates: start: 20131120
  3. OMEPRAZOLE. [Concomitant]
     Active Substance: OMEPRAZOLE
     Indication: PRODUCT USED FOR UNKNOWN INDICATION
     Dosage: 20 MG, UNK
     Route: 048
  4. VOLTAREN [Concomitant]
     Active Substance: DICLOFENAC SODIUM
     Indication: PRODUCT USED FOR UNKNOWN INDICATION
     Dosage: UNK, UNKNOWN
     Route: 065
  5. TRAZODONE                          /00447702/ [Concomitant]
     Active Substance: TRAZODONE HYDROCHLORIDE
     Indication: PRODUCT USED FOR UNKNOWN INDICATION
     Dosage: 10 MG, EACH EVENING
     Route: 048
  6. DIAZEPAM. [Concomitant]
     Active Substance: DIAZEPAM
     Indication: PRODUCT USED FOR UNKNOWN INDICATION
     Dosage: 5 MG, PRN
     Route: 048
  7. FLEXERIL [Concomitant]
     Active Substance: CYCLOBENZAPRINE HYDROCHLORIDE
     Indication: PRODUCT USED FOR UNKNOWN INDICATION
     Dosage: 10 MG, EACH EVENING
     Route: 065

REACTIONS (24)
  - Vertigo [Unknown]
  - Lethargy [Unknown]
  - Insomnia [Unknown]
  - Agitation [Unknown]
  - Anger [Unknown]
  - Fatigue [Unknown]
  - Depression [Unknown]
  - Confusional state [Unknown]
  - Tremor [Unknown]
  - Nausea [Unknown]
  - Headache [Unknown]
  - Hypersensitivity [Unknown]
  - Sleep disorder [Unknown]
  - Mood swings [Unknown]
  - Nightmare [Unknown]
  - Irritability [Unknown]
  - Pain [Unknown]
  - Dysphoria [Unknown]
  - Affect lability [Unknown]
  - Sensory disturbance [Unknown]
  - Paraesthesia [Unknown]
  - Dizziness [Unknown]
  - Anxiety [Unknown]
  - Drug withdrawal syndrome [Unknown]
